FAERS Safety Report 4268948-9 (Version None)
Quarter: 2004Q1

REPORT INFORMATION
  Report Type: 
  Country: None (occurrence: None)
  Receive Date: 20040109
  Receipt Date: 20031230
  Transmission Date: 20041129
  Serious: Yes (Other)
  Sender: FDA-Public Use
  Company Number: 200313598BCC

PATIENT
  Age: 83 Year
  Sex: Female
  Weight: 52.1637 kg

DRUGS (4)
  1. ALEVE [Suspect]
     Dosage: SEE IMAGE
     Route: 048
  2. ALEVE [Suspect]
     Dosage: SEE IMAGE
     Route: 048
  3. ALEVE [Suspect]
     Dosage: SEE IMAGE
     Route: 048
     Dates: start: 20030930
  4. ^ALOT OF MEDICATIONS, BUT UNSURE OF WHAT THEY ARE^ [Concomitant]

REACTIONS (2)
  - HAEMATURIA [None]
  - HAEMORRHAGE URINARY TRACT [None]
